FAERS Safety Report 6888362-7 (Version None)
Quarter: 2010Q3

REPORT INFORMATION
  Report Type: 
  Country: None (occurrence: None)
  Receive Date: 20100730
  Receipt Date: 20100722
  Transmission Date: 20110219
  Serious: Yes (Other)
  Sender: FDA-Public Use
  Company Number: CH-ABBOTT-10P-151-0659336-00

PATIENT
  Age: 37 Year
  Sex: Female

DRUGS (7)
  1. DEPAKENE [Suspect]
     Indication: AFFECTIVE DISORDER
     Route: 048
     Dates: start: 20000101
  2. SOLIAN [Suspect]
     Indication: MENTAL DISORDER
     Route: 048
     Dates: start: 20090101
  3. ZYPREXA [Suspect]
     Indication: MENTAL DISORDER
     Route: 048
     Dates: start: 20000501
  4. CITALOPRAM HYDROBROMIDE [Suspect]
     Indication: ANTIDEPRESSANT THERAPY
     Route: 048
     Dates: start: 20000501
  5. RISPERDAL [Suspect]
     Indication: PSYCHOTIC DISORDER
     Route: 048
     Dates: start: 20040401
  6. ENTUMIN [Suspect]
     Indication: MENTAL DISORDER
     Route: 048
     Dates: start: 20071001
  7. FLUOXETINE [Concomitant]
     Indication: PRODUCT USED FOR UNKNOWN INDICATION
     Dates: start: 20040401

REACTIONS (2)
  - OBESITY [None]
  - WEIGHT INCREASED [None]
